FAERS Safety Report 8505774-6 (Version None)
Quarter: 2012Q3

REPORT INFORMATION
  Report Type: 
  Country: None (occurrence: None)
  Receive Date: 20120712
  Receipt Date: 20120709
  Transmission Date: 20120928
  Serious: Yes (Life-Threatening)
  Sender: FDA-Public Use
  Company Number: PHHY2012BE059080

PATIENT
  Sex: Male
  Weight: 94 kg

DRUGS (12)
  1. BISOPROLOL FUMARATE [Concomitant]
     Indication: CARDIAC DISORDER
  2. ASPIRIN [Concomitant]
  3. ZOCOR [Concomitant]
  4. ELTHYRONE [Concomitant]
  5. COZAAR [Concomitant]
  6. ZANTAC [Concomitant]
     Indication: ACIDOSIS
  7. FELDENE [Concomitant]
     Indication: PAIN
  8. OFLOXACIN [Suspect]
     Indication: URINARY TRACT INFECTION
     Route: 048
     Dates: start: 20120615, end: 20120615
  9. AMIODARONE HCL [Concomitant]
     Indication: CARDIAC DISORDER
  10. PLAVIX [Concomitant]
  11. CLOZAN [Concomitant]
     Indication: ANXIETY
  12. AMLODIPINE [Concomitant]

REACTIONS (2)
  - PALPITATIONS [None]
  - HEART RATE INCREASED [None]
